FAERS Safety Report 6559174-9 (Version None)
Quarter: 2010Q1

REPORT INFORMATION
  Report Type: 
  Country: None (occurrence: None)
  Receive Date: 20100129
  Receipt Date: 20100120
  Transmission Date: 20100710
  Serious: Yes (Other)
  Sender: FDA-Public Use
  Company Number: US-JNJCH-2010002048

PATIENT
  Age: 25 Year
  Sex: Female

DRUGS (4)
  1. BENADRYL [Suspect]
     Indication: DRUG USE FOR UNKNOWN INDICATION
     Dosage: TEXT:UNSPECIFIED
     Route: 048
  2. TYLENOL (CAPLET) [Suspect]
     Indication: DRUG USE FOR UNKNOWN INDICATION
     Dosage: TEXT:UNSPECIFIED
     Route: 065
  3. EXTRA STRENGTH TYLENOL [Suspect]
     Indication: DRUG USE FOR UNKNOWN INDICATION
     Dosage: TEXT:UNSPECIFIED
     Route: 065
  4. CONTRACEPTIVE, UNSPECIFIED [Concomitant]
     Indication: CONTRACEPTION
     Dosage: TEXT:UNSPECIFIED
     Route: 065

REACTIONS (6)
  - CHILLS [None]
  - DIARRHOEA [None]
  - HEADACHE [None]
  - NAUSEA [None]
  - SWELLING [None]
  - URTICARIA [None]
